FAERS Safety Report 8219670-5 (Version None)
Quarter: 2012Q1

REPORT INFORMATION
  Report Type: 
  Country: None (occurrence: None)
  Receive Date: 20120319
  Receipt Date: 20120309
  Transmission Date: 20120608
  Serious: Yes (Disabling)
  Sender: FDA-Public Use
  Company Number: GXBR2012US000865

PATIENT
  Sex: Male

DRUGS (2)
  1. FLUPHENAZINE HCL [Suspect]
     Dosage: UNK MG, UNK
     Dates: start: 20100101, end: 20100101
  2. SEROQUEL [Suspect]
     Dosage: UNK MG, UNK
     Dates: start: 20100101, end: 20100101

REACTIONS (13)
  - DRUG INTERACTION [None]
  - MENTAL IMPAIRMENT [None]
  - NEUROLEPTIC MALIGNANT SYNDROME [None]
  - HEART INJURY [None]
  - TARDIVE DYSKINESIA [None]
  - HYPERSENSITIVITY [None]
  - OVERDOSE [None]
  - BRAIN INJURY [None]
  - NERVE INJURY [None]
  - INFECTION [None]
  - EMOTIONAL DISTRESS [None]
  - CARDIOVASCULAR DISORDER [None]
  - MYOCARDIAL INFARCTION [None]
